FAERS Safety Report 17647574 (Version 3)
Quarter: 2020Q2

REPORT INFORMATION
  Report Type: Report from Study
  Country: CA (occurrence: CA)
  Receive Date: 20200409
  Receipt Date: 20200519
  Transmission Date: 20200713
  Serious: Yes (Other)
  Sender: FDA-Public Use
  Company Number: CA-BRISTOL-MYERS SQUIBB COMPANY-BMS-2019-107966

PATIENT
  Age: 63 Year
  Sex: Female

DRUGS (1)
  1. ABATACEPT [Suspect]
     Active Substance: ABATACEPT
     Indication: RHEUMATOID ARTHRITIS
     Dosage: 750 MILLIGRAM, Q4WK
     Route: 042
     Dates: start: 20121101

REACTIONS (10)
  - Oral fungal infection [Recovering/Resolving]
  - Mouth ulceration [Recovering/Resolving]
  - Oral pain [Unknown]
  - Gastrointestinal disorder [Unknown]
  - Urinary tract infection [Recovering/Resolving]
  - Wound infection fungal [Not Recovered/Not Resolved]
  - Fibromyalgia [Unknown]
  - Diarrhoea [Unknown]
  - Fatigue [Unknown]
  - Wound secretion [Not Recovered/Not Resolved]

NARRATIVE: CASE EVENT DATE: 201912
